FAERS Safety Report 4369208-8 (Version None)
Quarter: 2004Q2

REPORT INFORMATION
  Report Type: 
  Country: None (occurrence: None)
  Receive Date: 20040603
  Receipt Date: 20040517
  Transmission Date: 20050107
  Serious: Yes (Life-Threatening)
  Sender: FDA-Public Use
  Company Number: 200411726JP

PATIENT
  Age: 71 Year
  Sex: Male

DRUGS (10)
  1. TAXOTERE [Suspect]
     Indication: ANGIOSARCOMA
     Route: 041
     Dates: start: 20030101, end: 20040501
  2. KYTRIL [Concomitant]
     Indication: PREMEDICATION
     Route: 041
     Dates: start: 20030101, end: 20040521
  3. ACECOL [Concomitant]
     Indication: HYPERTENSION
     Route: 048
     Dates: end: 20040521
  4. ADALAT [Concomitant]
     Indication: HYPERTENSION
     Route: 048
     Dates: end: 20040521
  5. ONE-ALPHA [Concomitant]
     Indication: OSTEOPOROSIS
     Route: 048
     Dates: end: 20040521
  6. THYRADIN [Concomitant]
     Indication: HYPOTHYROIDISM
     Route: 048
     Dates: end: 20040521
  7. ALLOPURINOL TAB [Concomitant]
     Indication: GOUT
     Route: 048
     Dates: end: 20040521
  8. TAKEPRON [Concomitant]
     Indication: GASTRIC ULCER
     Route: 048
     Dates: end: 20040521
  9. BASEN [Concomitant]
     Indication: DIABETES MELLITUS
     Route: 048
     Dates: end: 20040521
  10. NU-LOTAN [Concomitant]
     Indication: HYPERTENSION
     Route: 048
     Dates: end: 20040521

REACTIONS (3)
  - ATRIOVENTRICULAR BLOCK SECOND DEGREE [None]
  - BRADYCARDIA [None]
  - THERAPEUTIC RESPONSE DECREASED [None]
